FAERS Safety Report 8993012 (Version 2)
Quarter: 2013Q1

REPORT INFORMATION
  Report Type: Spontaneous
  Country: GB (occurrence: GB)
  Receive Date: 20130102
  Receipt Date: 20130220
  Transmission Date: 20140127
  Serious: Yes (Hospitalization)
  Sender: FDA-Public Use
  Company Number: GB-JNJFOC-20121212507

PATIENT
  Age: 16 Year
  Sex: Female

DRUGS (77)
  1. DOXORUBICIN [Suspect]
     Indication: BONE SARCOMA
     Route: 042
     Dates: start: 20121017, end: 20121018
  2. DOXORUBICIN [Suspect]
     Indication: BONE SARCOMA
     Route: 042
     Dates: start: 20121128, end: 20121129
  3. DOXORUBICIN [Suspect]
     Indication: BONE SARCOMA
     Route: 042
     Dates: start: 20121108, end: 20121108
  4. APREPITANT [Suspect]
     Indication: PROPHYLAXIS OF NAUSEA AND VOMITING
     Dosage: CYCLE 1
     Route: 048
     Dates: start: 20120921, end: 20120921
  5. APREPITANT [Suspect]
     Indication: PROPHYLAXIS OF NAUSEA AND VOMITING
     Dosage: CYCLE 1
     Route: 048
     Dates: start: 20120922, end: 20120922
  6. APREPITANT [Suspect]
     Indication: PROPHYLAXIS OF NAUSEA AND VOMITING
     Dosage: CYCLE 1
     Route: 048
     Dates: start: 20120923, end: 20120923
  7. APREPITANT [Suspect]
     Indication: PROPHYLAXIS OF NAUSEA AND VOMITING
     Dosage: CYCLE 2
     Route: 048
     Dates: start: 20121017, end: 20121017
  8. APREPITANT [Suspect]
     Indication: PROPHYLAXIS OF NAUSEA AND VOMITING
     Dosage: CYCLE 2
     Route: 048
     Dates: start: 20121018, end: 20121018
  9. APREPITANT [Suspect]
     Indication: PROPHYLAXIS OF NAUSEA AND VOMITING
     Dosage: CYCLE 2
     Route: 048
     Dates: start: 20121019, end: 20121019
  10. APREPITANT [Suspect]
     Indication: PROPHYLAXIS OF NAUSEA AND VOMITING
     Dosage: CYCLE 3
     Route: 048
     Dates: start: 20121107, end: 20121107
  11. APREPITANT [Suspect]
     Indication: PROPHYLAXIS OF NAUSEA AND VOMITING
     Route: 048
     Dates: start: 20121108, end: 20121108
  12. APREPITANT [Suspect]
     Indication: PROPHYLAXIS OF NAUSEA AND VOMITING
     Dosage: CYCLE 3
     Route: 048
     Dates: start: 20121109, end: 20121109
  13. APREPITANT [Suspect]
     Indication: PROPHYLAXIS OF NAUSEA AND VOMITING
     Dosage: CYCLE 4
     Route: 048
     Dates: start: 20121128, end: 20121128
  14. APREPITANT [Suspect]
     Indication: PROPHYLAXIS OF NAUSEA AND VOMITING
     Dosage: CYCLE 4
     Route: 048
     Dates: start: 20121129, end: 20121129
  15. APREPITANT [Suspect]
     Indication: PROPHYLAXIS OF NAUSEA AND VOMITING
     Dosage: CYCLE 4
     Route: 048
     Dates: start: 20121219, end: 20121219
  16. APREPITANT [Suspect]
     Indication: PROPHYLAXIS OF NAUSEA AND VOMITING
     Dosage: CYCLE 4
     Route: 048
     Dates: start: 20121130, end: 20121130
  17. APREPITANT [Suspect]
     Indication: PROPHYLAXIS OF NAUSEA AND VOMITING
     Dosage: CYCLE 4
     Route: 048
     Dates: start: 20121221, end: 20121221
  18. APREPITANT [Suspect]
     Indication: PROPHYLAXIS OF NAUSEA AND VOMITING
     Dosage: CYCLE 4
     Route: 048
     Dates: start: 20121220, end: 20121220
  19. ONDANSETRON [Suspect]
     Indication: PROPHYLAXIS OF NAUSEA AND VOMITING
     Dosage: CYCLE 3
     Route: 048
     Dates: start: 20121107, end: 20121107
  20. ONDANSETRON [Suspect]
     Indication: PROPHYLAXIS OF NAUSEA AND VOMITING
     Dosage: CYCLE 1
     Route: 048
     Dates: start: 20120925, end: 20120925
  21. ONDANSETRON [Suspect]
     Indication: PROPHYLAXIS OF NAUSEA AND VOMITING
     Dosage: CYCLE 1
     Route: 048
     Dates: start: 20120926, end: 20120926
  22. ONDANSETRON [Suspect]
     Indication: PROPHYLAXIS OF NAUSEA AND VOMITING
     Dosage: CYCLE 1
     Route: 048
     Dates: start: 20120927, end: 20120927
  23. ONDANSETRON [Suspect]
     Indication: PROPHYLAXIS OF NAUSEA AND VOMITING
     Dosage: CYCLE 2
     Route: 048
     Dates: start: 20121017, end: 20121017
  24. ONDANSETRON [Suspect]
     Indication: PROPHYLAXIS OF NAUSEA AND VOMITING
     Dosage: CYCLE 2
     Route: 048
     Dates: start: 20121018, end: 20121018
  25. ONDANSETRON [Suspect]
     Indication: PROPHYLAXIS OF NAUSEA AND VOMITING
     Dosage: CYCLE 2
     Route: 048
     Dates: start: 20121019, end: 20121019
  26. ONDANSETRON [Suspect]
     Indication: PROPHYLAXIS OF NAUSEA AND VOMITING
     Dosage: CYCLE 1
     Route: 048
     Dates: start: 20120924, end: 20120924
  27. ONDANSETRON [Suspect]
     Indication: PROPHYLAXIS OF NAUSEA AND VOMITING
     Dosage: CYCLE 3
     Route: 048
     Dates: start: 20121108, end: 20121108
  28. ONDANSETRON [Suspect]
     Indication: PROPHYLAXIS OF NAUSEA AND VOMITING
     Dosage: CYCLE 3
     Route: 048
     Dates: start: 20121109, end: 20121109
  29. ONDANSETRON [Suspect]
     Indication: PROPHYLAXIS OF NAUSEA AND VOMITING
     Dosage: CYCLE 3
     Route: 048
     Dates: start: 20121110, end: 20121110
  30. ONDANSETRON [Suspect]
     Indication: PROPHYLAXIS OF NAUSEA AND VOMITING
     Dosage: CYCLE 4
     Route: 048
     Dates: start: 20121128, end: 20121128
  31. ONDANSETRON [Suspect]
     Indication: PROPHYLAXIS OF NAUSEA AND VOMITING
     Dosage: CYCLE 4
     Route: 048
     Dates: start: 20121129, end: 20121129
  32. ONDANSETRON [Suspect]
     Indication: PROPHYLAXIS OF NAUSEA AND VOMITING
     Dosage: CYCLE 4
     Route: 048
     Dates: start: 20121201, end: 20121201
  33. ONDANSETRON [Suspect]
     Indication: PROPHYLAXIS OF NAUSEA AND VOMITING
     Route: 042
     Dates: start: 20120921, end: 20120924
  34. ONDANSETRON [Suspect]
     Indication: PROPHYLAXIS OF NAUSEA AND VOMITING
     Route: 042
     Dates: start: 20121219, end: 20121219
  35. ONDANSETRON [Suspect]
     Indication: PROPHYLAXIS OF NAUSEA AND VOMITING
     Route: 042
     Dates: start: 20121220, end: 20121220
  36. ONDANSETRON [Suspect]
     Indication: PROPHYLAXIS OF NAUSEA AND VOMITING
     Route: 042
     Dates: start: 20121222, end: 20121222
  37. ONDANSETRON [Suspect]
     Indication: PROPHYLAXIS OF NAUSEA AND VOMITING
     Route: 042
     Dates: start: 20121221, end: 20121221
  38. IFOSFAMIDE [Suspect]
     Indication: BONE SARCOMA
     Route: 042
     Dates: start: 20121017, end: 20121019
  39. IFOSFAMIDE [Suspect]
     Indication: BONE SARCOMA
     Route: 042
     Dates: start: 20121107, end: 20121109
  40. IFOSFAMIDE [Suspect]
     Indication: BONE SARCOMA
     Route: 042
     Dates: start: 20121128, end: 20121130
  41. DEXAMETHASON [Concomitant]
     Indication: PROPHYLAXIS OF NAUSEA AND VOMITING
     Route: 042
     Dates: start: 20120921, end: 20120921
  42. NORETHISTERONE [Concomitant]
     Indication: MENSTRUAL CYCLE MANAGEMENT
     Route: 048
     Dates: start: 20120903
  43. HEPARIN [Concomitant]
     Indication: ANTICOAGULANT THERAPY
     Route: 042
     Dates: start: 20120914
  44. COLOSTRUM [Concomitant]
     Indication: PRODUCT USED FOR UNKNOWN INDICATION
     Route: 065
     Dates: start: 201209
  45. CO-TRIMOXAZOLE [Concomitant]
     Indication: MUCOSAL INFLAMMATION
     Route: 048
     Dates: start: 20121030, end: 201211
  46. CO-TRIMOXAZOLE [Concomitant]
     Indication: INFECTION
     Route: 048
     Dates: start: 20121030, end: 201211
  47. FLOXACILLIN [Concomitant]
     Indication: PERIORBITAL CELLULITIS
     Route: 048
     Dates: start: 20121010, end: 20121019
  48. MOVICOL [Concomitant]
     Indication: CONSTIPATION
     Route: 048
     Dates: start: 20121007
  49. CIPROFLOXACIN [Concomitant]
     Indication: CELLULITIS
     Route: 048
     Dates: start: 20121030, end: 201211
  50. CIPROFLOXACIN [Concomitant]
     Indication: CELLULITIS
     Route: 048
     Dates: start: 20121010, end: 20121023
  51. CIPROFLOXACIN [Concomitant]
     Indication: MUCOSAL INFLAMMATION
     Route: 048
     Dates: start: 20121030, end: 201211
  52. CIPROFLOXACIN [Concomitant]
     Indication: MUCOSAL INFLAMMATION
     Route: 048
     Dates: start: 20121010, end: 20121023
  53. CHLORHEXIDINE W/LIDOCAINE [Concomitant]
     Indication: ANAESTHESIA
     Route: 061
     Dates: start: 20121006, end: 20121016
  54. TINZAPARIN [Concomitant]
     Indication: THROMBOSIS PROPHYLAXIS
     Route: 058
     Dates: start: 20121012, end: 20121130
  55. TINZAPARIN [Concomitant]
     Indication: THROMBOSIS PROPHYLAXIS
     Route: 058
     Dates: start: 20121104
  56. HYPROMELLOSE [Concomitant]
     Indication: DRY EYE
     Route: 061
     Dates: start: 20121019
  57. CYCLIZINE [Concomitant]
     Indication: NAUSEA
     Route: 048
     Dates: start: 20121017, end: 20121017
  58. DEXTROSE / SODIUM CHLORIDE [Concomitant]
     Indication: FLUID REPLACEMENT
     Dosage: 125ML/M^2/HR
     Route: 042
     Dates: start: 20121017, end: 20121019
  59. DEXTROSE / SODIUM CHLORIDE [Concomitant]
     Indication: FLUID REPLACEMENT
     Dosage: 125ML/M^2/HR
     Route: 042
     Dates: start: 20121107, end: 20121109
  60. DEXTROSE / SODIUM CHLORIDE [Concomitant]
     Indication: FLUID REPLACEMENT
     Dosage: 125ML/M^2/HR
     Route: 042
     Dates: start: 20121128, end: 20121130
  61. MESNA [Concomitant]
     Indication: PROPHYLAXIS
     Route: 042
     Dates: start: 20121017, end: 20121019
  62. MESNA [Concomitant]
     Indication: PROPHYLAXIS
     Route: 042
     Dates: start: 20121128, end: 20121130
  63. MESNA [Concomitant]
     Indication: PROPHYLAXIS
     Route: 042
     Dates: start: 20121107, end: 20121110
  64. OXYCODONE [Concomitant]
     Indication: PAIN
     Route: 042
     Dates: start: 20121030, end: 20121030
  65. OXYCODONE [Concomitant]
     Indication: PAIN
     Route: 048
     Dates: start: 20121122, end: 20121201
  66. OXYCODONE [Concomitant]
     Indication: PAIN
     Route: 048
     Dates: start: 20121117
  67. CODEINE PHOSPHATE [Concomitant]
     Indication: PAIN
     Route: 048
     Dates: start: 20120830
  68. POLYETHYLENE GLYCOL [Concomitant]
     Indication: CONSTIPATION
     Route: 048
     Dates: start: 20120830, end: 201209
  69. AMOXICILLIN AND CLAVULANATE POTASSIUM [Concomitant]
     Indication: MUCOSAL INFLAMMATION
     Route: 048
     Dates: start: 20121030, end: 201211
  70. BIOEFA [Concomitant]
     Indication: PRODUCT USED FOR UNKNOWN INDICATION
     Route: 065
     Dates: start: 201209
  71. FENTANYL [Concomitant]
     Indication: PAIN
     Route: 048
     Dates: start: 20121030
  72. SODIUM DOCUSATE [Concomitant]
     Indication: PROCTALGIA
     Route: 048
     Dates: start: 20121007
  73. SODIUM PICOSULFATE [Concomitant]
     Indication: CONSTIPATION
     Route: 042
     Dates: start: 20121101, end: 20121101
  74. PARACETAMOL [Concomitant]
     Indication: HEADACHE
     Route: 048
     Dates: start: 20121107, end: 20121107
  75. G-CSF [Concomitant]
     Indication: BLOOD COUNT
     Route: 058
     Dates: start: 20121129, end: 20121205
  76. G-CSF [Concomitant]
     Indication: BLOOD COUNT
     Route: 058
     Dates: start: 20121112, end: 20121122
  77. WHOLE BLOOD [Concomitant]
     Indication: BLOOD COUNT
     Dosage: 1 UNIT
     Route: 042
     Dates: start: 20121201, end: 20121201

REACTIONS (6)
  - Abdominal pain [Recovered/Resolved]
  - Neutropenia [Recovered/Resolved]
  - Mucosal inflammation [Recovered/Resolved]
  - Febrile neutropenia [Recovered/Resolved]
  - Constipation [Recovered/Resolved]
  - Off label use [Unknown]
